FAERS Safety Report 5358720-0 (Version None)
Quarter: 2007Q2

REPORT INFORMATION
  Report Type: 
  Country: None (occurrence: None)
  Receive Date: 20070615
  Receipt Date: 20070608
  Transmission Date: 20071010
  Serious: Yes (Life-Threatening)
  Sender: FDA-Public Use
  Company Number: ES-ROCHE-499390

PATIENT
  Sex: Female
  Weight: 70 kg

DRUGS (1)
  1. BONIVA [Suspect]
     Indication: OSTEOPOROSIS
     Dosage: FORMULATION REPORTED AS FILM COATED TABLET.
     Route: 048
     Dates: start: 20070402, end: 20070402

REACTIONS (1)
  - UPPER GASTROINTESTINAL HAEMORRHAGE [None]
